FAERS Safety Report 13892831 (Version 1)
Quarter: 2017Q3

REPORT INFORMATION
  Report Type: Spontaneous
  Country: US (occurrence: US)
  Receive Date: 20170822
  Receipt Date: 20170822
  Transmission Date: 20171127
  Serious: No
  Sender: FDA-Public Use
  Company Number: US-ROCHE-1404874

PATIENT
  Sex: Female

DRUGS (8)
  1. CARISOPRODOL. [Concomitant]
     Active Substance: CARISOPRODOL
  2. LEVOTHYROXINE. [Concomitant]
     Active Substance: LEVOTHYROXINE
  3. HERCEPTIN [Suspect]
     Active Substance: TRASTUZUMAB
     Indication: BREAST CANCER
     Route: 042
  4. TRAMADOL. [Concomitant]
     Active Substance: TRAMADOL
  5. SIMVASTATIN. [Concomitant]
     Active Substance: SIMVASTATIN
  6. ANASTROZOLE. [Concomitant]
     Active Substance: ANASTROZOLE
  7. CITALOPRAM [Concomitant]
     Active Substance: CITALOPRAM HYDROBROMIDE
  8. NORVASC [Concomitant]
     Active Substance: AMLODIPINE BESYLATE

REACTIONS (2)
  - Pruritus [Unknown]
  - Dysuria [Unknown]
